FAERS Safety Report 14988544 (Version 1)
Quarter: 2018Q2

REPORT INFORMATION
  Report Type: Spontaneous
  Country: DE (occurrence: DE)
  Receive Date: 20180608
  Receipt Date: 20180608
  Transmission Date: 20180711
  Serious: Yes (Other)
  Sender: FDA-Public Use
  Company Number: DE-PFIZER INC-2018230614

PATIENT
  Age: 8 Decade
  Sex: Male

DRUGS (1)
  1. SORTIS [Suspect]
     Active Substance: ATORVASTATIN
     Dosage: 40 MG, UNK
     Dates: start: 2013

REACTIONS (1)
  - Cerebrovascular accident [Unknown]
